FAERS Safety Report 10897649 (Version 1)
Quarter: 2015Q1

REPORT INFORMATION
  Report Type: Other
  Country: GB (occurrence: GB)
  Receive Date: 20150309
  Receipt Date: 20150309
  Transmission Date: 20150721
  Serious: Yes (Other)
  Sender: FDA-Public Use
  Company Number: GB-MYLANLABS-2015M1005831

PATIENT

DRUGS (6)
  1. DEXAMETHASONE. [Concomitant]
     Active Substance: DEXAMETHASONE
     Dosage: SHORT TERM WITH CHEMOTHERAPY.
  2. COCODAMOL [Concomitant]
     Active Substance: ACETAMINOPHEN\CODEINE PHOSPHATE
     Indication: ANALGESIC THERAPY
     Dosage: LONG TERM.
  3. GRANISETRON [Concomitant]
     Active Substance: GRANISETRON
     Dosage: SHORT TERM WITH CHEMOTHERAPY.
  4. APREPITANT. [Concomitant]
     Active Substance: APREPITANT
     Dosage: SHORT TERM WITH CHEMOTHERAPY.
  5. FLUOROURACIL. [Suspect]
     Active Substance: FLUOROURACIL
     Indication: SQUAMOUS CELL CARCINOMA OF THE HYPOPHARYNX
     Dosage: 1000MG/M2
     Route: 042
     Dates: start: 20150106, end: 20150108
  6. CISPLATIN. [Concomitant]
     Active Substance: CISPLATIN
     Indication: CHEMOTHERAPY
     Dosage: UNK
     Dates: start: 20150106

REACTIONS (4)
  - Headache [Unknown]
  - Renal impairment [Unknown]
  - Hypertension [Recovered/Resolved]
  - Urine output decreased [Unknown]

NARRATIVE: CASE EVENT DATE: 20150108
